FAERS Safety Report 9105602 (Version 2)
Quarter: 2013Q1

REPORT INFORMATION
  Report Type: Spontaneous
  Country: US (occurrence: US)
  Receive Date: 20130220
  Receipt Date: 20130320
  Transmission Date: 20140127
  Serious: Yes (Other)
  Sender: FDA-Public Use
  Company Number: US-BAYER-2013-019262

PATIENT
  Age: 52 Year
  Sex: Female

DRUGS (7)
  1. STIVARGA [Suspect]
     Indication: RECTAL CANCER
     Dosage: 160 MG, UNK
     Dates: start: 20121217, end: 20121230
  2. TYLENOL [PARACETAMOL] [Concomitant]
     Indication: PAIN
  3. HYDROCODONE [Concomitant]
     Indication: PAIN
     Dosage: UNK UNK, PRN
  4. COMPAZINE [Concomitant]
     Dosage: 10 MG, PRN
  5. XELODA [Concomitant]
     Indication: RECTAL CANCER
     Dosage: 2000 MG DAILY
     Dates: start: 20110822, end: 201212
  6. OXALIPLATIN [Concomitant]
     Dosage: UNK
     Dates: start: 20120423
  7. ERBITUX [Concomitant]
     Dosage: UNK
     Dates: start: 20110809

REACTIONS (8)
  - Hepatic function abnormal [Recovered/Resolved]
  - Chills [None]
  - Pyrexia [None]
  - Jaundice [None]
  - Rash generalised [None]
  - Pruritus [None]
  - Asthenia [Recovered/Resolved]
  - Fatigue [Recovered/Resolved]
